FAERS Safety Report 9562972 (Version 2)
Quarter: 2013Q4

REPORT INFORMATION
  Report Type: Spontaneous
  Country: US (occurrence: US)
  Receive Date: 20130927
  Receipt Date: 20131031
  Transmission Date: 20140711
  Serious: Yes (Hospitalization)
  Sender: FDA-Public Use
  Company Number: US-GLAXOSMITHKLINE-A1042848A

PATIENT
  Age: 87 Year
  Sex: Female

DRUGS (7)
  1. ADVAIR [Suspect]
     Indication: CHRONIC OBSTRUCTIVE PULMONARY DISEASE
     Dosage: 1PUFF TWICE PER DAY
     Route: 055
     Dates: start: 2006
  2. SPIRIVA [Concomitant]
  3. ZYRTEC [Concomitant]
  4. B12 [Concomitant]
  5. CALCIUM [Concomitant]
  6. THYROID [Concomitant]
  7. CORTISONE TOPICAL [Concomitant]

REACTIONS (2)
  - Pneumonia [Recovered/Resolved]
  - Dysphonia [Recovered/Resolved]
